FAERS Safety Report 16600787 (Version 1)
Quarter: 2019Q3

REPORT INFORMATION
  Report Type: Spontaneous
  Country: US (occurrence: US)
  Receive Date: 20190719
  Receipt Date: 20190719
  Transmission Date: 20191004
  Serious: No
  Sender: FDA-Public Use
  Company Number: US-BAUSCH-BL-2019-020010

PATIENT
  Sex: Male

DRUGS (1)
  1. SILIQ [Suspect]
     Active Substance: BRODALUMAB
     Indication: PSORIASIS
     Dosage: 1 INJECTION AT WEEKS 0, 1, AND 2 FOLLOWED BY 210 MG (1 INJECTION) EVERY 2 WEEKS
     Route: 058
     Dates: start: 201810, end: 201905

REACTIONS (1)
  - Therapeutic product effect incomplete [Unknown]
